FAERS Safety Report 25498269 (Version 1)
Quarter: 2025Q3

REPORT INFORMATION
  Report Type: Spontaneous
  Country: US (occurrence: US)
  Receive Date: 20250701
  Receipt Date: 20250701
  Transmission Date: 20251021
  Serious: Yes (Other)
  Sender: AUROBINDO
  Company Number: US-AUROBINDO-AUR-APL-2025-031729

PATIENT
  Age: 39 Year
  Sex: Male

DRUGS (12)
  1. AMITRIPTYLINE HYDROCHLORIDE [Suspect]
     Active Substance: AMITRIPTYLINE HYDROCHLORIDE
     Indication: Burning mouth syndrome
     Dosage: 50 MILLIGRAM, TWO TIMES A DAY
     Route: 065
  2. AMITRIPTYLINE HYDROCHLORIDE [Suspect]
     Active Substance: AMITRIPTYLINE HYDROCHLORIDE
     Dosage: 75 MILLIGRAM, TWO TIMES A DAY
     Route: 065
  3. DEXAMETHASONE [Suspect]
     Active Substance: DEXAMETHASONE
     Indication: Burning mouth syndrome
     Route: 048
  4. GABAPENTIN [Suspect]
     Active Substance: GABAPENTIN
     Indication: Burning mouth syndrome
     Route: 065
  5. LYRICA [Suspect]
     Active Substance: PREGABALIN
     Indication: Burning mouth syndrome
     Route: 065
  6. CANNABIDIOL [Suspect]
     Active Substance: CANNABIDIOL
     Indication: Burning mouth syndrome
     Route: 065
  7. ALPHA LIPOIC ACID [Suspect]
     Active Substance: .ALPHA.-LIPOIC ACID
     Indication: Burning mouth syndrome
     Route: 065
  8. LITHIUM [Concomitant]
     Active Substance: LITHIUM
     Indication: Bipolar disorder
     Route: 065
  9. OXCARBAZEPINE [Concomitant]
     Active Substance: OXCARBAZEPINE
     Indication: Bipolar disorder
     Route: 065
  10. CAPSAICIN [Concomitant]
     Active Substance: CAPSAICIN
     Indication: Burning mouth syndrome
     Dosage: 0.02 PERCENT, FOUR TIMES/DAY WASH
     Route: 065
  11. LIDOCAINE [Concomitant]
     Active Substance: LIDOCAINE
     Indication: Burning mouth syndrome
     Route: 065
  12. NYSTATIN [Concomitant]
     Active Substance: NYSTATIN
     Indication: Burning mouth syndrome
     Route: 065

REACTIONS (1)
  - Therapy non-responder [Unknown]
